FAERS Safety Report 9869200 (Version 1)
Quarter: 2014Q1

REPORT INFORMATION
  Report Type: Spontaneous
  Country: BR (occurrence: BR)
  Receive Date: 20140205
  Receipt Date: 20140205
  Transmission Date: 20141002
  Serious: Yes (Hospitalization)
  Sender: FDA-Public Use
  Company Number: BR-ASTRAZENECA-2014SE07162

PATIENT
  Sex: Female

DRUGS (3)
  1. SELOZOK [Suspect]
     Indication: BLOOD PRESSURE FLUCTUATION
     Route: 048
  2. ROSUVASTATIN [Suspect]
     Route: 048
  3. BRILINTA [Suspect]
     Route: 048
     Dates: start: 201304

REACTIONS (1)
  - Carotid artery occlusion [Recovered/Resolved]
